FAERS Safety Report 8837189 (Version 2)
Quarter: 2012Q4

REPORT INFORMATION
  Report Type: Report from Study
  Country: BE (occurrence: DE)
  Receive Date: 20121011
  Receipt Date: 20121221
  Transmission Date: 20130627
  Serious: Yes (Hospitalization, Disabling)
  Sender: FDA-Public Use
  Company Number: BE-009507513-2007SP012161

PATIENT
  Age: 65 Year
  Sex: Female

DRUGS (11)
  1. MK-7365 [Suspect]
     Dosage: UNK UNK, qd, 50.4
     Dates: start: 20060926, end: 20061106
  2. DEXAMETHASONE [Concomitant]
     Dates: start: 20060802
  3. LEVETIRACETAM [Concomitant]
     Dates: start: 20060803
  4. ALLOPURINOL [Concomitant]
  5. ECOTRIN [Concomitant]
  6. BISOPROLOL [Concomitant]
  7. HYDROCHLOROTHIAZIDE [Concomitant]
  8. LEVOTHYROXINE SODIUM [Concomitant]
  9. PANTOPRAZOLE [Concomitant]
  10. AMITRIPTYLIN [Concomitant]
  11. AMLOBETA [Concomitant]

REACTIONS (4)
  - Fatigue [Not Recovered/Not Resolved]
  - Cognitive disorder [Not Recovered/Not Resolved]
  - Cranial nerve disorder [Recovered/Resolved]
  - Urinary tract infection [Recovered/Resolved]
